FAERS Safety Report 10060874 (Version 3)
Quarter: 2014Q3

REPORT INFORMATION
  Report Type: Spontaneous
  Country: BR (occurrence: BR)
  Receive Date: 20140404
  Receipt Date: 20140701
  Transmission Date: 20150326
  Serious: Yes (Other)
  Sender: FDA-Public Use
  Company Number: BR-009507513-1403BRA003821

PATIENT
  Age: 41 Year
  Sex: Female
  Weight: 80 kg

DRUGS (14)
  1. INSULIN HUMAN [Concomitant]
     Active Substance: INSULIN HUMAN
     Indication: DIABETES MELLITUS
     Dosage: 120 IU, TID
     Route: 058
     Dates: start: 2010
  2. FLUOXETINE [Concomitant]
     Active Substance: FLUOXETINE\FLUOXETINE HYDROCHLORIDE
     Indication: PROPHYLAXIS
     Dosage: 20 MG, QAM
     Dates: start: 2013
  3. TELAPREVIR [Concomitant]
     Active Substance: TELAPREVIR
     Dosage: 3 DF, TID
     Route: 048
     Dates: end: 20140509
  4. RIBAVIRIN. [Concomitant]
     Active Substance: RIBAVIRIN
     Indication: HEPATITIS C
     Dosage: 750 MG, QAM
     Route: 048
     Dates: start: 20140221, end: 20140509
  5. ASCORBIC ACID. [Concomitant]
     Active Substance: ASCORBIC ACID
     Indication: VITAMIN SUPPLEMENTATION
     Dosage: 1 G, QD
     Dates: start: 201401
  6. DIAZEPAM. [Concomitant]
     Active Substance: DIAZEPAM
     Indication: DEPRESSION
     Dosage: 0.5 MG, QD
     Route: 048
  7. OMEPRAZOLE. [Concomitant]
     Active Substance: OMEPRAZOLE
     Indication: GASTRITIS PROPHYLAXIS
     Dosage: 20 MG, QAM
     Route: 048
     Dates: start: 2010
  8. INSULIN R HUMAN [Concomitant]
     Indication: DIABETES MELLITUS
     Dosage: 20 IU, TID
     Route: 058
     Dates: start: 2010
  9. RIBAVIRIN. [Concomitant]
     Active Substance: RIBAVIRIN
     Dosage: 1250 MG, QD
     Dates: start: 2010, end: 2010
  10. PEGINTRON [Suspect]
     Active Substance: PEGINTERFERON ALFA-2B
     Indication: HEPATITIS C
     Dosage: 80 MICROGRAM, QW
     Route: 058
     Dates: start: 20140221, end: 20140509
  11. PURAN [Concomitant]
     Active Substance: LEVOTHYROXINE SODIUM
     Indication: HYPOTHYROIDISM
     Dosage: 50 MG, QD
     Route: 048
     Dates: start: 2010
  12. DRAMAMINE [Concomitant]
     Active Substance: DIMENHYDRINATE
     Indication: NAUSEA
     Dosage: UNK, Q6H
     Dates: start: 2006
  13. TELAPREVIR [Concomitant]
     Active Substance: TELAPREVIR
     Indication: HEPATITIS C
     Dosage: 6 DF, BID
     Route: 048
     Dates: start: 201403, end: 201403
  14. RIBAVIRIN. [Concomitant]
     Active Substance: RIBAVIRIN
     Dosage: 500 MG, QPM
     Route: 048
     Dates: start: 20140221, end: 20140509

REACTIONS (47)
  - Nausea [Not Recovered/Not Resolved]
  - Fatigue [Not Recovered/Not Resolved]
  - Aggression [Not Recovered/Not Resolved]
  - Decreased appetite [Not Recovered/Not Resolved]
  - Alopecia [Recovering/Resolving]
  - Dysphagia [Recovered/Resolved]
  - Haematochezia [Recovered/Resolved]
  - Dizziness [Recovered/Resolved]
  - Dyspnoea [Recovered/Resolved]
  - Anal haemorrhage [Recovered/Resolved]
  - Depression [Recovered/Resolved]
  - Skin injury [Recovering/Resolving]
  - Pruritus [Recovering/Resolving]
  - Anal pruritus [Recovered/Resolved]
  - Pain [Recovered/Resolved]
  - Tonsillar inflammation [Recovered/Resolved]
  - Vaginal mucosal blistering [Recovered/Resolved]
  - Irritability [Not Recovered/Not Resolved]
  - Abdominal distension [Not Recovered/Not Resolved]
  - Asthenia [Not Recovered/Not Resolved]
  - Diarrhoea [Recovered/Resolved]
  - Chest pain [Recovered/Resolved]
  - Hypersomnia [Not Recovered/Not Resolved]
  - Chills [Recovered/Resolved]
  - Retching [Not Recovered/Not Resolved]
  - Proctalgia [Recovered/Resolved]
  - Weight decreased [Not Recovered/Not Resolved]
  - Haemorrhoids [Recovered/Resolved]
  - Myalgia [Recovered/Resolved]
  - Abdominal pain [Recovered/Resolved]
  - Skin wound [Recovered/Resolved]
  - Hypertensive crisis [Recovered/Resolved]
  - Cough [Not Recovered/Not Resolved]
  - Headache [Not Recovered/Not Resolved]
  - Platelet count decreased [Recovering/Resolving]
  - Flatulence [Recovered/Resolved]
  - Rhinorrhoea [Recovered/Resolved]
  - Ear haemorrhage [Recovered/Resolved]
  - Diabetes mellitus [Not Recovered/Not Resolved]
  - Blood pressure increased [Not Recovered/Not Resolved]
  - Pain in extremity [Not Recovered/Not Resolved]
  - Painful defaecation [Recovered/Resolved]
  - Oropharyngeal pain [Recovered/Resolved]
  - Nasal dryness [Recovered/Resolved]
  - Pruritus generalised [Recovered/Resolved]
  - Dandruff [Recovering/Resolving]
  - Blood pressure increased [Not Recovered/Not Resolved]

NARRATIVE: CASE EVENT DATE: 201402
